FAERS Safety Report 7749800-0 (Version None)
Quarter: 2011Q3

REPORT INFORMATION
  Report Type: 
  Country: None (occurrence: None)
  Receive Date: 20110914
  Receipt Date: 20110912
  Transmission Date: 20111222
  Serious: Yes (Other)
  Sender: FDA-Public Use
  Company Number: US-PFIZER INC-2011132545

PATIENT
  Sex: Male

DRUGS (9)
  1. PROZAC [Concomitant]
  2. CHANTIX [Suspect]
     Dosage: STARTING PACK AND CONTINUING PACKS
     Dates: start: 20100218, end: 20100302
  3. PROZAC [Concomitant]
     Indication: DEPRESSION
     Dosage: UNK
     Dates: start: 20060101
  4. PROZAC [Concomitant]
     Indication: ANXIETY
  5. PROZAC [Concomitant]
  6. CHANTIX [Suspect]
     Dosage: STARTING PACK AND CONTINUING PACKS
     Dates: start: 20091116, end: 20091216
  7. HYDROCODONE [Concomitant]
     Indication: PAIN
     Dosage: UNK
     Dates: start: 20050101, end: 20100101
  8. CHANTIX [Suspect]
     Indication: SMOKING CESSATION THERAPY
     Dosage: STARTING PACK AND CONTINUING PACKS
     Dates: start: 20070809, end: 20071009
  9. OXYCODONE [Concomitant]
     Indication: PAIN
     Dosage: UNK
     Dates: start: 20050101, end: 20100101

REACTIONS (3)
  - DEPRESSION [None]
  - SUICIDAL IDEATION [None]
  - ANXIETY [None]
